FAERS Safety Report 14571664 (Version 2)
Quarter: 2018Q2

REPORT INFORMATION
  Report Type: Spontaneous
  Country: US (occurrence: US)
  Receive Date: 20180226
  Receipt Date: 20180523
  Transmission Date: 20180711
  Serious: No
  Sender: FDA-Public Use
  Company Number: US-PFIZER INC-2018078494

PATIENT
  Age: 67 Year
  Sex: Female
  Weight: 88 kg

DRUGS (14)
  1. SKELAXIN [Suspect]
     Active Substance: METAXALONE
     Indication: BACK PAIN
  2. PROMETHAZINE [Concomitant]
     Active Substance: PROMETHAZINE\PROMETHAZINE HYDROCHLORIDE
     Dosage: UNK, AS NEEDED [1 ORAL EVERY FOUR TO SIX HOURS AS NEEDED; DISPENSE: 60 UNSPECIFIED; 10 DAYS SUPPLY]
     Route: 048
  3. TRIAMCINOLONE [Concomitant]
     Active Substance: TRIAMCINOLONE
     Dosage: UNK, AS NEEDED  (TOPICALLY TO AFFECTED AREA TWO TIMES A DAY AS NEEDED)
     Route: 061
  4. MAGNESIUM [Concomitant]
     Active Substance: MAGNESIUM
     Dosage: 400 MG, UNK
     Route: 048
  5. SKELAXIN [Suspect]
     Active Substance: METAXALONE
     Indication: MUSCLE SPASMS
     Dosage: 800 MG, 3X/DAY
     Route: 048
     Dates: start: 20180214, end: 20180217
  6. REQUIP [Concomitant]
     Active Substance: ROPINIROLE HYDROCHLORIDE
     Indication: RESTLESS LEGS SYNDROME
     Dosage: 4 MG, DAILY [TAKE 1 PO Q AFTERNOON AND 3 PO AT HS FOR RESTLESS LEGS; DISPENSE: 360 UNSPECIFIED]
     Route: 048
  7. SKELAXIN [Suspect]
     Active Substance: METAXALONE
     Indication: NEUROPATHY PERIPHERAL
     Dosage: UNK
     Route: 048
     Dates: start: 20180213, end: 20180213
  8. PANTOPRAZOLE [Concomitant]
     Active Substance: PANTOPRAZOLE
     Dosage: 40 MG, DAILY
     Route: 048
  9. DICYCLOMINE [Concomitant]
     Active Substance: DICYCLOMINE HYDROCHLORIDE
     Dosage: 20 MG, 3X/DAY
     Route: 048
  10. VITAMIN B12 [Concomitant]
     Active Substance: CYANOCOBALAMIN
     Dosage: 1000 UG, UNK
     Route: 048
  11. AMLODIPINE [Concomitant]
     Active Substance: AMLODIPINE BESYLATE
     Dosage: 10 MG, DAILY
     Route: 048
  12. VITAMIN D3 [Concomitant]
     Active Substance: CHOLECALCIFEROL
     Dosage: 5000 IU, UNK
     Route: 048
  13. CYMBALTA [Concomitant]
     Active Substance: DULOXETINE HYDROCHLORIDE
     Dosage: 30 MG, DAILY
     Route: 048
  14. NYSTATIN. [Concomitant]
     Active Substance: NYSTATIN
     Dosage: UNK, APPLY TOPICALLY AS DIRECTED
     Route: 061

REACTIONS (5)
  - Feeling jittery [Recovered/Resolved]
  - Nausea [Recovered/Resolved]
  - Vomiting [Recovered/Resolved]
  - Drug ineffective [Recovered/Resolved]
  - Condition aggravated [Recovered/Resolved]

NARRATIVE: CASE EVENT DATE: 201802
